FAERS Safety Report 8062823-X (Version None)
Quarter: 2012Q1

REPORT INFORMATION
  Report Type: 
  Country: None (occurrence: None)
  Receive Date: 20120111
  Receipt Date: 20111228
  Transmission Date: 20120608
  Serious: Yes (Hospitalization, Other)
  Sender: FDA-Public Use
  Company Number: 2011PROUSA00800

PATIENT
  Age: 77 Year
  Sex: Male
  Weight: 71.2 kg

DRUGS (1)
  1. PROVENGE [Suspect]
     Indication: PROSTATE CANCER METASTATIC
     Dosage: 250 ML, SINGLE, INTRAVENOUS
     Route: 042
     Dates: start: 20111107, end: 20111107

REACTIONS (7)
  - SUBDURAL HAEMATOMA [None]
  - URINARY TRACT INFECTION [None]
  - FATIGUE [None]
  - HYPOTENSION [None]
  - ANAEMIA [None]
  - PANCYTOPENIA [None]
  - CARDIAC FAILURE CONGESTIVE [None]
